APPROVED DRUG PRODUCT: LAMIVUDINE
Active Ingredient: LAMIVUDINE
Strength: 300MG
Dosage Form/Route: TABLET;ORAL
Application: A203277 | Product #002 | TE Code: AB
Applicant: HETERO LABS LTD UNIT V
Approved: Jan 6, 2014 | RLD: No | RS: No | Type: RX